FAERS Safety Report 25837914 (Version 1)
Quarter: 2025Q3

REPORT INFORMATION
  Report Type: Spontaneous
  Country: US (occurrence: None)
  Receive Date: 20250923
  Receipt Date: 20250923
  Transmission Date: 20251020
  Serious: Yes (Disabling)
  Sender: FDA-CTU
  Company Number: None

PATIENT
  Age: 53 Year
  Sex: Male
  Weight: 78.75 kg

DRUGS (5)
  1. KORLYM [Suspect]
     Active Substance: MIFEPRISTONE
     Indication: Diabetes mellitus
     Dosage: OTHER QUANTITY : 1 TABLET(S);?FREQUENCY : DAILY;?
     Dates: end: 20250301
  2. OZEMPIC [Concomitant]
     Active Substance: SEMAGLUTIDE
  3. JARDIANCE [Concomitant]
     Active Substance: EMPAGLIFLOZIN
  4. ROSUVASTATIN [Concomitant]
     Active Substance: ROSUVASTATIN
  5. LISINOPRIL [Concomitant]
     Active Substance: LISINOPRIL

REACTIONS (7)
  - Blood glucose decreased [None]
  - Abdominal discomfort [None]
  - Nausea [None]
  - Constipation [None]
  - Haematochezia [None]
  - Therapy cessation [None]
  - Cortisol increased [None]

NARRATIVE: CASE EVENT DATE: 20240226
